FAERS Safety Report 7006932 (Version 5)
Quarter: 2013Q2

REPORT INFORMATION
  Report Type: Spontaneous
  Country: JP (occurrence: JP)
  Receive Date: 20090529
  Receipt Date: 20130401
  Transmission Date: 20140414
  Serious: Yes (Death, Hospitalization, Other)
  Sender: FDA-Public Use
  Company Number: PHHY2009JP20537

PATIENT
  Age: 6 Year
  Sex: Female

DRUGS (2)
  1. SANDIMMUN [Suspect]
     Indication: CORD BLOOD TRANSPLANT THERAPY
     Dosage: UNK
     Dates: start: 200402, end: 200402
  2. TACROLIMUS [Concomitant]
     Indication: CORD BLOOD TRANSPLANT THERAPY

REACTIONS (16)
  - Sudden death [Fatal]
  - Walking aid user [Recovered/Resolved]
  - Posterior reversible encephalopathy syndrome [Recovered/Resolved]
  - Convulsion [Recovered/Resolved]
  - Loss of consciousness [Recovered/Resolved]
  - Mental status changes [Recovered/Resolved]
  - Abulia [Recovered/Resolved]
  - Mutism [Recovered/Resolved]
  - Mood swings [Unknown]
  - Cerebral atrophy [Unknown]
  - Vomiting [Recovered/Resolved]
  - Decreased appetite [Unknown]
  - Hypertension [Recovering/Resolving]
  - Renal impairment [Recovering/Resolving]
  - Epilepsy [Not Recovered/Not Resolved]
  - Complex partial seizures [Recovered/Resolved]
